FAERS Safety Report 25075804 (Version 1)
Quarter: 2025Q1

REPORT INFORMATION
  Report Type: Spontaneous
  Country: US (occurrence: US)
  Receive Date: 20250313
  Receipt Date: 20250313
  Transmission Date: 20250409
  Serious: No
  Sender: MERZ
  Company Number: US-Merz Pharmaceuticals GmbH-2025030000057

PATIENT

DRUGS (23)
  1. XEOMIN [Suspect]
     Active Substance: INCOBOTULINUMTOXINA
     Indication: Torticollis
     Dates: start: 202310, end: 202310
  2. XEOMIN [Suspect]
     Active Substance: INCOBOTULINUMTOXINA
     Dates: start: 202401, end: 202401
  3. XEOMIN [Suspect]
     Active Substance: INCOBOTULINUMTOXINA
     Dosage: 70 INTERNATIONAL UNIT
     Dates: start: 202402, end: 202402
  4. XEOMIN [Suspect]
     Active Substance: INCOBOTULINUMTOXINA
     Dates: start: 202405, end: 202405
  5. BOTOX [Concomitant]
     Active Substance: ONABOTULINUMTOXINA
     Indication: Neuromuscular blocking therapy
  6. BOTOX [Concomitant]
     Active Substance: ONABOTULINUMTOXINA
  7. AMOXICILLIN [Concomitant]
     Active Substance: AMOXICILLIN
  8. UNSPECIFIED INGREDIENT [Concomitant]
     Active Substance: UNSPECIFIED INGREDIENT
     Indication: Pain
  9. CYMBALTA [Concomitant]
     Active Substance: DULOXETINE HYDROCHLORIDE
  10. CHLORTHALIDONE [Concomitant]
     Active Substance: CHLORTHALIDONE
  11. LAMOTRIGINE [Concomitant]
     Active Substance: LAMOTRIGINE
     Dates: end: 202310
  12. TIZANIDINE [Concomitant]
     Active Substance: TIZANIDINE
     Indication: Muscle contracture
  13. DIAZEPAM [Concomitant]
     Active Substance: DIAZEPAM
     Indication: Muscle contracture
  14. DIAZEPAM [Concomitant]
     Active Substance: DIAZEPAM
     Indication: Pain
  15. LORAZEPAM [Concomitant]
     Active Substance: LORAZEPAM
     Indication: Muscle contracture
  16. NEURONTIN [Concomitant]
     Active Substance: GABAPENTIN
     Indication: Muscle contracture
     Dosage: 300 MILLIGRAM
  17. SEROQUEL [Concomitant]
     Active Substance: QUETIAPINE FUMARATE
  18. ABILIFY [Concomitant]
     Active Substance: ARIPIPRAZOLE
  19. CEFIXIME [Concomitant]
     Active Substance: CEFIXIME
  20. ROBAXIN [Concomitant]
     Active Substance: METHOCARBAMOL
     Indication: Muscle spasticity
     Dosage: 750 MILLIGRAM
     Route: 048
     Dates: start: 202308
  21. NORVASC [Concomitant]
     Active Substance: AMLODIPINE BESYLATE
     Dosage: 5 MILLIGRAM
     Route: 048
  22. CRESTOR [Concomitant]
     Active Substance: ROSUVASTATIN CALCIUM
     Dosage: 10 MILLIGRAM
     Route: 048
  23. LISINOPRIL [Concomitant]
     Active Substance: LISINOPRIL
     Dosage: 10 MILLIGRAM
     Route: 048

REACTIONS (2)
  - Facial pain [Not Recovered/Not Resolved]
  - Therapeutic response decreased [Not Recovered/Not Resolved]

NARRATIVE: CASE EVENT DATE: 20230101
